FAERS Safety Report 5595986-6 (Version None)
Quarter: 2008Q1

REPORT INFORMATION
  Report Type: 
  Country: None (occurrence: None)
  Receive Date: 20080118
  Receipt Date: 20080107
  Transmission Date: 20080703
  Serious: Yes (Hospitalization, Other)
  Sender: FDA-Public Use
  Company Number: FR-GENENTECH-252623

PATIENT
  Sex: Female
  Weight: 50 kg

DRUGS (7)
  1. AVASTIN [Suspect]
     Indication: COLORECTAL CANCER
     Dosage: 250 MG, UNK
     Route: 042
     Dates: start: 20071108, end: 20071122
  2. AVASTIN [Suspect]
     Dosage: 200 MG, UNK
  3. FLUOROURACIL [Concomitant]
     Indication: COLORECTAL CANCER
     Dates: start: 20071026
  4. FOLINIC ACID [Concomitant]
     Indication: COLORECTAL CANCER
  5. IRINOTECAN [Concomitant]
     Indication: COLORECTAL CANCER
     Dates: start: 20071026
  6. CORTICOSTEROIDS (UNK INGREDIENTS) [Concomitant]
     Indication: PREMEDICATION
  7. ELVORINE [Concomitant]
     Indication: DRUG USE FOR UNKNOWN INDICATION
     Dates: start: 20071026

REACTIONS (1)
  - DERMATITIS EXFOLIATIVE [None]
